FAERS Safety Report 16788247 (Version 4)
Quarter: 2021Q4

REPORT INFORMATION
  Report Type: Report from Study
  Country: NL (occurrence: NL)
  Receive Date: 20190910
  Receipt Date: 20211122
  Transmission Date: 20220303
  Serious: Yes (Hospitalization)
  Sender: FDA-Public Use
  Company Number: NL-ABBVIE-19S-114-2710031-00

PATIENT
  Sex: Female

DRUGS (2)
  1. CARBIDOPA\LEVODOPA [Suspect]
     Active Substance: CARBIDOPA\LEVODOPA
     Indication: Parkinson^s disease
     Dosage: DOSAGE: MD: 8.5 ML; CD 4.0 ML/HR.; ED 1.7 ML
     Route: 050
     Dates: start: 20170313
  2. CARBIDOPA\LEVODOPA [Suspect]
     Active Substance: CARBIDOPA\LEVODOPA
     Dosage: MD: 8.5 ML, CD: 3.8ML/H, ED: 1.7ML/H.
     Route: 050

REACTIONS (19)
  - General physical health deterioration [Not Recovered/Not Resolved]
  - Device programming error [Not Recovered/Not Resolved]
  - Abnormal faeces [Not Recovered/Not Resolved]
  - Fibroma [Recovered/Resolved]
  - Stress [Not Recovered/Not Resolved]
  - Fibroma [Not Recovered/Not Resolved]
  - Complication associated with device [Unknown]
  - Medical device discomfort [Unknown]
  - Nocturia [Not Recovered/Not Resolved]
  - Tension [Unknown]
  - Muscle rigidity [Not Recovered/Not Resolved]
  - Fatigue [Not Recovered/Not Resolved]
  - Unevaluable event [Unknown]
  - Depression [Recovering/Resolving]
  - Unevaluable event [Not Recovered/Not Resolved]
  - Dyskinesia [Not Recovered/Not Resolved]
  - On and off phenomenon [Unknown]
  - Bradykinesia [Not Recovered/Not Resolved]
  - Parkinson^s disease [Unknown]

NARRATIVE: CASE EVENT DATE: 20190101
